FAERS Safety Report 5970103-9 (Version None)
Quarter: 2008Q4

REPORT INFORMATION
  Report Type: 
  Country: None (occurrence: None)
  Receive Date: 20081126
  Receipt Date: 20081117
  Transmission Date: 20090506
  Serious: Yes (Other)
  Sender: FDA-Public Use
  Company Number: US-PFIZER INC-2008097768

PATIENT
  Sex: Female

DRUGS (5)
  1. ZYRTEC [Suspect]
  2. NAPROXEN [Suspect]
  3. DULOXETINE [Suspect]
  4. RISPERIDONE [Suspect]
  5. FLUOXETINE [Suspect]

REACTIONS (1)
  - SUICIDE ATTEMPT [None]
